FAERS Safety Report 11806435 (Version 1)
Quarter: 2015Q4

REPORT INFORMATION
  Report Type: Report from Study
  Country: AU (occurrence: AU)
  Receive Date: 20151207
  Receipt Date: 20151207
  Transmission Date: 20160305
  Serious: Yes (Other)
  Sender: FDA-Public Use
  Company Number: AU-REGENERON PHARMACEUTICALS, INC.-2015-11234

PATIENT

DRUGS (3)
  1. EYLEA [Suspect]
     Active Substance: AFLIBERCEPT
     Indication: NEOVASCULAR AGE-RELATED MACULAR DEGENERATION
     Dosage: 2 MG, Q1MON
     Route: 031
  2. EYLEA [Suspect]
     Active Substance: AFLIBERCEPT
     Dosage: 2 MG, DOSE REGIMEN: UNDISCLOSED
     Route: 031
     Dates: start: 20151022
  3. CHLORHEXIDINE [Concomitant]
     Active Substance: CHLORHEXIDINE

REACTIONS (7)
  - Cataract [Unknown]
  - Weight decreased [Unknown]
  - Depression [Unknown]
  - Dry age-related macular degeneration [Unknown]
  - Dry eye [Unknown]
  - Cataract [Recovered/Resolved]
  - Inappropriate schedule of drug administration [Unknown]

NARRATIVE: CASE EVENT DATE: 2014
